FAERS Safety Report 17706649 (Version 4)
Quarter: 2020Q2

REPORT INFORMATION
  Report Type: Spontaneous
  Country: US (occurrence: US)
  Receive Date: 20200424
  Receipt Date: 20200625
  Transmission Date: 20200714
  Serious: Yes (Other)
  Sender: FDA-Public Use
  Company Number: US-HORIZON-DUE-0138-2020

PATIENT
  Age: 68 Year
  Sex: Female

DRUGS (2)
  1. DUEXIS [Suspect]
     Active Substance: FAMOTIDINE\IBUPROFEN
     Indication: PROCEDURAL PAIN
     Dosage: 1 TAB A DAY ONCE OR TWICE A WEEK
     Dates: start: 201908
  2. MOBIC [Concomitant]
     Active Substance: MELOXICAM

REACTIONS (11)
  - Knee arthroplasty [Unknown]
  - Off label use [Unknown]
  - Limb asymmetry [Unknown]
  - Gait disturbance [Unknown]
  - Intervertebral disc protrusion [Unknown]
  - Abdominal discomfort [Unknown]
  - Back pain [Unknown]
  - Spinal operation [Unknown]
  - Dyspepsia [Unknown]
  - Intentional product use issue [Not Recovered/Not Resolved]
  - Arthralgia [Unknown]

NARRATIVE: CASE EVENT DATE: 2019
